FAERS Safety Report 5098040-5 (Version None)
Quarter: 2006Q3

REPORT INFORMATION
  Report Type: 
  Country: None (occurrence: None)
  Receive Date: 20060906
  Receipt Date: 20060328
  Transmission Date: 20061208
  Serious: No
  Sender: FDA-Public Use
  Company Number: US-GLAXOSMITHKLINE-A0599369A

PATIENT
  Age: 80 Year
  Sex: Female

DRUGS (4)
  1. REQUIP [Suspect]
     Indication: PARKINSON'S DISEASE
     Dosage: 1MG THREE TIMES PER DAY
     Route: 048
  2. SLEEPING PILLS [Concomitant]
  3. ATIVAN [Concomitant]
  4. FOSAMAX [Concomitant]

REACTIONS (3)
  - DRUG INEFFECTIVE [None]
  - NAUSEA [None]
  - SOMNOLENCE [None]
